FAERS Safety Report 13328278 (Version 1)
Quarter: 2017Q1

REPORT INFORMATION
  Report Type: Spontaneous
  Country: US (occurrence: US)
  Receive Date: 20170310
  Receipt Date: 20170310
  Transmission Date: 20170428
  Serious: Yes (Hospitalization)
  Sender: FDA-Public Use
  Company Number: None

PATIENT
  Age: 77 Year
  Sex: Female

DRUGS (9)
  1. WARFARIN [Suspect]
     Active Substance: WARFARIN
     Route: 048
  2. HYDROXYUREA. [Concomitant]
     Active Substance: HYDROXYUREA
  3. ALBUTEROL. [Concomitant]
     Active Substance: ALBUTEROL
  4. FENTANYL. [Concomitant]
     Active Substance: FENTANYL
  5. FUROSEMIDE. [Concomitant]
     Active Substance: FUROSEMIDE
  6. INSULIN [Concomitant]
     Active Substance: INSULIN NOS
  7. SPIRIVA [Concomitant]
     Active Substance: TIOTROPIUM BROMIDE MONOHYDRATE
  8. LORAZEPAM. [Concomitant]
     Active Substance: LORAZEPAM
  9. OXYCODONE [Concomitant]
     Active Substance: OXYCODONE

REACTIONS (1)
  - Gastrointestinal haemorrhage [None]

NARRATIVE: CASE EVENT DATE: 20161212
